FAERS Safety Report 8669345 (Version 4)
Quarter: 2013Q2

REPORT INFORMATION
  Report Type: Spontaneous
  Country: US (occurrence: US)
  Receive Date: 20120717
  Receipt Date: 20130522
  Transmission Date: 20140414
  Serious: Yes (Hospitalization, Other)
  Sender: FDA-Public Use
  Company Number: US-009507513-1207USA003261

PATIENT
  Sex: Female

DRUGS (6)
  1. FOSAMAX [Suspect]
     Indication: OSTEOPOROSIS
     Dosage: 70 MG, QW
     Route: 048
     Dates: start: 1997, end: 2010
  2. FOSAMAX [Suspect]
     Indication: OSTEOPENIA
  3. FOSAMAX [Suspect]
     Indication: OSTEOPOROSIS
     Dosage: 70 MG, QW
     Route: 048
     Dates: start: 20101013
  4. VITAMINS (UNSPECIFIED) [Concomitant]
     Dosage: UNK
  5. ATACAND [Concomitant]
     Indication: HYPERTENSION
  6. CELEBREX [Concomitant]
     Indication: OSTEOARTHRITIS
     Dosage: UNK
     Dates: start: 1990, end: 2008

REACTIONS (20)
  - Femur fracture [Unknown]
  - Femur fracture [Unknown]
  - Intramedullary rod insertion [Unknown]
  - Intramedullary rod insertion [Unknown]
  - Fall [Unknown]
  - Renal failure chronic [Not Recovered/Not Resolved]
  - Low turnover osteopathy [Unknown]
  - Tooth extraction [Unknown]
  - Renal disorder [Unknown]
  - Lithotripsy [Unknown]
  - Anaemia [Unknown]
  - Transfusion [Unknown]
  - Leukocytosis [Unknown]
  - Hypoxia [Unknown]
  - Blood cholesterol increased [Unknown]
  - Osteoarthritis [Unknown]
  - Peptic ulcer [Unknown]
  - Ulcer haemorrhage [Unknown]
  - Gastrooesophageal reflux disease [Unknown]
  - Hyperlipidaemia [Unknown]
